FAERS Safety Report 12649435 (Version 4)
Quarter: 2016Q4

REPORT INFORMATION
  Report Type: Report from Study
  Country: US (occurrence: US)
  Receive Date: 20160812
  Receipt Date: 20161005
  Transmission Date: 20170207
  Serious: Yes (Hospitalization)
  Sender: FDA-Public Use
  Company Number: US-BIOGEN-2016BI00277442

PATIENT
  Sex: Female

DRUGS (2)
  1. TYSABRI [Suspect]
     Active Substance: NATALIZUMAB
     Route: 065
     Dates: start: 20151016, end: 20151016
  2. TYSABRI [Suspect]
     Active Substance: NATALIZUMAB
     Indication: MULTIPLE SCLEROSIS
     Route: 042
     Dates: start: 20140224, end: 20150430

REACTIONS (8)
  - Septic shock [Recovered/Resolved]
  - Renal impairment [Unknown]
  - Bladder dysfunction [Unknown]
  - Pyrexia [Unknown]
  - Blindness [Unknown]
  - Cystitis escherichia [Unknown]
  - Panic attack [Unknown]
  - Muscular weakness [Unknown]
